FAERS Safety Report 10994097 (Version 2)
Quarter: 2019Q3

REPORT INFORMATION
  Report Type: Spontaneous
  Country: CA (occurrence: CA)
  Receive Date: 20150407
  Receipt Date: 20190930
  Transmission Date: 20191004
  Serious: Yes (Life-Threatening, Hospitalization)
  Sender: FDA-Public Use
  Company Number: CA-TEVA-552634ACC

PATIENT
  Age: 59 Year
  Sex: Female

DRUGS (16)
  1. LOSARTAN. [Concomitant]
     Active Substance: LOSARTAN
     Dosage: UNKNOWN FORM STRENGTH
     Route: 065
  2. LOSARTAN. [Suspect]
     Active Substance: LOSARTAN
     Indication: PRODUCT USED FOR UNKNOWN INDICATION
     Dosage: 50 MILLIGRAM DAILY;
     Route: 048
  3. CIPROFLOXACIN. [Suspect]
     Active Substance: CIPROFLOXACIN
     Indication: ASYMPTOMATIC BACTERIURIA
     Dosage: 1000 MILLIGRAM DAILY;
     Route: 048
  4. CIPRO XL [Suspect]
     Active Substance: CIPROFLOXACIN\CIPROFLOXACIN HYDROCHLORIDE
     Indication: ASYMPTOMATIC BACTERIURIA
     Dosage: 1000 MILLIGRAM DAILY;
     Route: 048
  5. ADVIL [Concomitant]
     Active Substance: IBUPROFEN
     Dosage: UNKNOWN FORM STRENGTH
     Route: 065
  6. IBUPROFEN. [Suspect]
     Active Substance: IBUPROFEN
     Indication: PRODUCT USED FOR UNKNOWN INDICATION
     Route: 065
  7. ADVIL [Suspect]
     Active Substance: IBUPROFEN
     Dosage: UNKNOWN FORM STRENGTH
     Route: 065
  8. JANUMET [Concomitant]
     Active Substance: METFORMIN HYDROCHLORIDE\SITAGLIPTIN PHOSPHATE
     Dosage: UNKNOWN FORM STRENGTH
     Route: 065
  9. NAPROXEN. [Concomitant]
     Active Substance: NAPROXEN
     Dosage: UNKNOWN FORM STRENGTH
     Route: 065
  10. TYLENOL [Concomitant]
     Active Substance: ACETAMINOPHEN
     Dosage: UNKNOWN FORM STRENGTH
     Route: 065
  11. LIPIDIL SUPRA [Concomitant]
     Active Substance: FENOFIBRATE
     Route: 065
  12. CIPRO XL [Concomitant]
     Active Substance: CIPROFLOXACIN\CIPROFLOXACIN HYDROCHLORIDE
     Dosage: UNKNOWN FORM STRENGTH
     Route: 065
  13. NAPROXEN. [Suspect]
     Active Substance: NAPROXEN
     Dosage: UNKNOWN FORM STRENGTH
     Route: 065
  14. ASA [Concomitant]
     Active Substance: ASPIRIN
     Dosage: UNKNOWN FORM STRENGTH
     Route: 065
  15. DIAMICRON MR [Concomitant]
     Active Substance: GLICLAZIDE
     Dosage: UNKNOWN FORM STRENGTH
     Route: 065
  16. METFORMIN HYDROCHLORIDE/SITAGLIPTIN PHOSPHATE [Concomitant]
     Active Substance: METFORMIN HYDROCHLORIDE\SITAGLIPTIN PHOSPHATE

REACTIONS (6)
  - Hyperglycaemia [Recovered/Resolved]
  - Acute kidney injury [Recovered/Resolved]
  - Tubulointerstitial nephritis [Recovered/Resolved]
  - Blood creatinine increased [Recovered/Resolved]
  - Blood phosphorus increased [Recovered/Resolved]
  - Blood calcium decreased [Recovered/Resolved]
